FAERS Safety Report 20940768 (Version 2)
Quarter: 2022Q3

REPORT INFORMATION
  Report Type: Report from Study
  Country: CN (occurrence: CN)
  Receive Date: 20220609
  Receipt Date: 20220714
  Transmission Date: 20221026
  Serious: Yes (Death, Other)
  Sender: FDA-Public Use
  Company Number: CN-NOVARTISPH-NVSC2022CN110291

PATIENT
  Age: 62 Year
  Sex: Female
  Weight: 52 kg

DRUGS (21)
  1. TYKERB [Suspect]
     Active Substance: LAPATINIB DITOSYLATE
     Indication: Hormone receptor positive breast cancer
     Dosage: 1250 MG, QD
     Route: 048
     Dates: start: 20211015, end: 20220104
  2. TYKERB [Suspect]
     Active Substance: LAPATINIB DITOSYLATE
     Dosage: 1250 MG, QD
     Route: 048
     Dates: start: 20220106, end: 20220124
  3. TYKERB [Suspect]
     Active Substance: LAPATINIB DITOSYLATE
     Dosage: 1250 MG, QD
     Route: 048
     Dates: start: 20220126, end: 20220401
  4. TYKERB [Suspect]
     Active Substance: LAPATINIB DITOSYLATE
     Dosage: 1250 MG, QD
     Route: 048
     Dates: start: 20220403, end: 20220425
  5. TYKERB [Suspect]
     Active Substance: LAPATINIB DITOSYLATE
     Dosage: UNK (250MG (30 TABLETS/BOX)
     Route: 065
  6. TYKERB [Suspect]
     Active Substance: LAPATINIB DITOSYLATE
     Dosage: UNK (250MG (30 TABLETS/BOX)
     Route: 065
  7. TYKERB [Suspect]
     Active Substance: LAPATINIB DITOSYLATE
     Dosage: UNK (250MG (30 TABLETS/BOX)
     Route: 065
  8. CAPECITABINE [Concomitant]
     Active Substance: CAPECITABINE
     Indication: Hormone receptor positive breast cancer
     Dosage: 1450 MG, BID
     Route: 048
     Dates: start: 20211015, end: 20211028
  9. CAPECITABINE [Concomitant]
     Active Substance: CAPECITABINE
     Dosage: 1450 MG, BID
     Route: 048
     Dates: start: 20211106, end: 20211119
  10. CAPECITABINE [Concomitant]
     Active Substance: CAPECITABINE
     Dosage: 1600 MG, BID
     Route: 048
     Dates: start: 20211127, end: 20211210
  11. CAPECITABINE [Concomitant]
     Active Substance: CAPECITABINE
     Dosage: 1600 MG, BID
     Route: 048
     Dates: start: 20211218, end: 20211231
  12. CAPECITABINE [Concomitant]
     Active Substance: CAPECITABINE
     Dosage: 1450 MG, BID
     Route: 048
     Dates: start: 20220108, end: 20220121
  13. CAPECITABINE [Concomitant]
     Active Substance: CAPECITABINE
     Dosage: 1450 MG, BID
     Route: 048
     Dates: start: 20220220, end: 20220305
  14. CAPECITABINE [Concomitant]
     Active Substance: CAPECITABINE
     Dosage: 1100 MG, BID
     Route: 048
     Dates: start: 20220404, end: 20220417
  15. CAPECITABINE [Concomitant]
     Active Substance: CAPECITABINE
     Dosage: UNK (500MG (12 TABLETS/BOX)
     Route: 065
  16. CAPECITABINE [Concomitant]
     Active Substance: CAPECITABINE
     Dosage: UNK (500MG (12 TABLETS/BOX)
     Route: 065
  17. CAPECITABINE [Concomitant]
     Active Substance: CAPECITABINE
     Dosage: UNK (150MG (12 TABLETS/BOX)
     Route: 065
  18. CAPECITABINE [Concomitant]
     Active Substance: CAPECITABINE
     Dosage: UNK (150MG (12 TABLETS/BOX)
     Route: 065
  19. CAPECITABINE [Concomitant]
     Active Substance: CAPECITABINE
     Dosage: UNK (150MG (12 TABLETS/BOX)
     Route: 065
  20. GLICLAZIDE [Concomitant]
     Active Substance: GLICLAZIDE
     Indication: Type 2 diabetes mellitus
     Dosage: 30 MG, QD (SUSTAINED-RELEASE TABLETS)
     Route: 065
  21. METFORMIN HYDROCHLORIDE [Concomitant]
     Active Substance: METFORMIN HYDROCHLORIDE
     Indication: Type 2 diabetes mellitus
     Dosage: 0.5 G, BID
     Route: 065

REACTIONS (12)
  - Death [Fatal]
  - Diarrhoea [Not Recovered/Not Resolved]
  - Gamma-glutamyltransferase increased [Unknown]
  - Vomiting [Not Recovered/Not Resolved]
  - Mental disorder [Not Recovered/Not Resolved]
  - Fatigue [Not Recovered/Not Resolved]
  - Jaundice [Not Recovered/Not Resolved]
  - Ocular icterus [Not Recovered/Not Resolved]
  - Ascites [Not Recovered/Not Resolved]
  - Stomatitis [Unknown]
  - Palmar-plantar erythrodysaesthesia syndrome [Recovered/Resolved]
  - Product dose omission issue [Unknown]

NARRATIVE: CASE EVENT DATE: 20220417
